FAERS Safety Report 9313203 (Version 2)
Quarter: 2013Q3

REPORT INFORMATION
  Report Type: Report from Study
  Country: US (occurrence: US)
  Receive Date: 20130528
  Receipt Date: 20130828
  Transmission Date: 20140515
  Serious: No
  Sender: FDA-Public Use
  Company Number: US-ABBOTT-13P-163-1078744-00

PATIENT
  Age: 63 Year
  Sex: Male
  Weight: 97.61 kg

DRUGS (7)
  1. ANDROGEL [Suspect]
     Indication: BLOOD TESTOSTERONE DECREASED
     Dosage: 1 PUMP PER DAY
     Route: 062
     Dates: start: 20130215, end: 201304
  2. ANDROGEL [Suspect]
     Dosage: 2 PUMP PER DAY
     Dates: start: 201304
  3. SIMVASTATIN [Concomitant]
     Indication: BLOOD CHOLESTEROL INCREASED
  4. REQUIP [Concomitant]
     Indication: RESTLESS LEGS SYNDROME
  5. CLONOPIN [Concomitant]
     Indication: RESTLESS LEGS SYNDROME
  6. CIALIS [Concomitant]
     Indication: ERECTILE DYSFUNCTION
  7. ALBUTEROL [Concomitant]
     Indication: ASTHMA

REACTIONS (3)
  - Abnormal dreams [Not Recovered/Not Resolved]
  - Blood thyroid stimulating hormone decreased [Not Recovered/Not Resolved]
  - Insomnia [Not Recovered/Not Resolved]
